FAERS Safety Report 7360674-2 (Version None)
Quarter: 2011Q1

REPORT INFORMATION
  Report Type: 
  Country: None (occurrence: None)
  Receive Date: 20110315
  Receipt Date: 20110315
  Transmission Date: 20110831
  Serious: Yes (Other)
  Sender: FDA-Public Use
  Company Number: None

PATIENT
  Age: 39 Year
  Sex: Female
  Weight: 104.3273 kg

DRUGS (2)
  1. DEXAMETHASONE ?? ?? [Suspect]
     Indication: PHARYNGEAL OEDEMA
     Dosage: 10MG 1X IM
     Route: 030
     Dates: start: 20110312, end: 20110312
  2. DEXAMETHASONE ?? ?? [Suspect]
     Indication: OROPHARYNGEAL PAIN
     Dosage: 10MG 1X IM
     Route: 030
     Dates: start: 20110312, end: 20110312

REACTIONS (3)
  - FEELING HOT [None]
  - HYPERHIDROSIS [None]
  - ERYTHEMA [None]
